FAERS Safety Report 11638870 (Version 5)
Quarter: 2016Q1

REPORT INFORMATION
  Report Type: Report from Study
  Country: US (occurrence: US)
  Receive Date: 20151017
  Receipt Date: 20160128
  Transmission Date: 20160525
  Serious: Yes (Other)
  Sender: FDA-Public Use
  Company Number: US-AMGEN-USASL2015107470

PATIENT
  Age: 71 Year
  Sex: Female

DRUGS (2)
  1. ENBREL [Suspect]
     Active Substance: ETANERCEPT
     Indication: RHEUMATOID ARTHRITIS
     Dosage: 50 MG, QWK
     Route: 065
     Dates: start: 20150908
  2. ENBREL [Suspect]
     Active Substance: ETANERCEPT
     Dosage: UNK
     Route: 065

REACTIONS (10)
  - Temporomandibular joint syndrome [Unknown]
  - Injection site haemorrhage [Unknown]
  - Erythema [Recovered/Resolved]
  - Injection site pain [Unknown]
  - Swelling [Recovered/Resolved]
  - Injection site erythema [Unknown]
  - Aphasia [Unknown]
  - Pharyngeal cyst [Unknown]
  - Incorrect route of drug administration [Unknown]
  - Hypoacusis [Unknown]

NARRATIVE: CASE EVENT DATE: 2015
